FAERS Safety Report 8828330 (Version 3)
Quarter: 2012Q4

REPORT INFORMATION
  Report Type: 
  Country: JP (occurrence: JP)
  Receive Date: 20121005
  Receipt Date: 20121116
  Transmission Date: 20130627
  Serious: Yes (Other)
  Sender: FDA-Public Use
  Company Number: JP-SANOFI-AVENTIS-2012SA072945

PATIENT
  Age: 59 Year
  Sex: Female

DRUGS (5)
  1. MYSLEE [Suspect]
     Indication: DIFFICULTY SLEEPING
     Route: 048
  2. URINORM [Suspect]
     Indication: DRUG USE FOR UNKNOWN INDICATION
     Route: 048
     Dates: start: 20120904, end: 20120924
  3. IMMUNOSUPPRESSIVE AGENTS [Concomitant]
  4. MEDROL [Concomitant]
  5. BAKTAR [Concomitant]
     Route: 048

REACTIONS (3)
  - Jaundice [Recovered/Resolved]
  - Liver function test abnormal [Recovered/Resolved]
  - Drug eruption [Recovered/Resolved]
